FAERS Safety Report 16911597 (Version 1)
Quarter: 2019Q4

REPORT INFORMATION
  Report Type: Spontaneous
  Country: SE (occurrence: SE)
  Receive Date: 20191013
  Receipt Date: 20191013
  Transmission Date: 20200122
  Serious: Yes (Hospitalization)
  Sender: FDA-Public Use
  Company Number: SE-ABBVIE-19K-150-2960903-00

PATIENT
  Age: 17 Year
  Sex: Male

DRUGS (3)
  1. SALOFALK (AMINOSALICYLIC ACID) [Suspect]
     Active Substance: AMINOSALICYLIC ACID
     Indication: INFLAMMATORY BOWEL DISEASE
     Dosage: DOSERING 1, 1 DOSAGE
     Route: 065
     Dates: end: 20181030
  2. HUMIRA [Suspect]
     Active Substance: ADALIMUMAB
     Indication: PRODUCT USED FOR UNKNOWN INDICATION
     Route: 058
     Dates: end: 20181030
  3. ZANTAC [Concomitant]
     Active Substance: RANITIDINE HYDROCHLORIDE
     Indication: PRODUCT USED FOR UNKNOWN INDICATION

REACTIONS (2)
  - Renal disorder [Not Recovered/Not Resolved]
  - Blood creatine increased [Not Recovered/Not Resolved]

NARRATIVE: CASE EVENT DATE: 20181030
